FAERS Safety Report 25805352 (Version 1)
Quarter: 2025Q3

REPORT INFORMATION
  Report Type: Spontaneous
  Country: US (occurrence: US)
  Receive Date: 20250916
  Receipt Date: 20250916
  Transmission Date: 20251020
  Serious: Yes (Hospitalization)
  Sender: RECORDATI
  Company Number: US-ORPHANEU-2025006465

PATIENT
  Sex: Female

DRUGS (3)
  1. OSILODROSTAT [Suspect]
     Active Substance: OSILODROSTAT
     Indication: Adrenocortical carcinoma
     Dosage: 10 MILLIGRAM, BID
     Dates: start: 20250904
  2. OSILODROSTAT [Suspect]
     Active Substance: OSILODROSTAT
     Indication: Metastasis
  3. OSILODROSTAT [Suspect]
     Active Substance: OSILODROSTAT
     Indication: Off label use

REACTIONS (2)
  - Dyspnoea [Unknown]
  - Off label use [Recovered/Resolved]

NARRATIVE: CASE EVENT DATE: 20250901
